FAERS Safety Report 6178778-9 (Version None)
Quarter: 2009Q2

REPORT INFORMATION
  Report Type: 
  Country: None (occurrence: None)
  Receive Date: 20090504
  Receipt Date: 20090221
  Transmission Date: 20091009
  Serious: No
  Sender: FDA-Public Use
  Company Number: DE-ALEXION-A200800043

PATIENT

DRUGS (4)
  1. SOLIRIS [Suspect]
     Indication: PAROXYSMAL NOCTURNAL HAEMOGLOBINURIA
     Dosage: 600 MG, SINGLE
     Route: 042
     Dates: start: 20071227, end: 20071227
  2. SOLIRIS [Suspect]
     Dosage: UNK, SINGLE
     Route: 042
  3. SOLIRIS [Suspect]
     Dosage: 600 MG, SINGLE
     Route: 042
     Dates: start: 20080111, end: 20080111
  4. SOLIRIS [Suspect]
     Dosage: UNK, SINGLE
     Route: 042
     Dates: start: 20080125, end: 20080125

REACTIONS (2)
  - BLOOD BILIRUBIN INCREASED [None]
  - INFUSION RELATED REACTION [None]
